FAERS Safety Report 5762897-2 (Version None)
Quarter: 2008Q2

REPORT INFORMATION
  Report Type: 
  Country: None (occurrence: None)
  Receive Date: 20080609
  Receipt Date: 20080529
  Transmission Date: 20081010
  Serious: Yes (Death, Hospitalization)
  Sender: FDA-Public Use
  Company Number: MX-ROCHE-568089

PATIENT
  Sex: Female
  Weight: 70 kg

DRUGS (1)
  1. CAPECITABINE [Suspect]
     Indication: BREAST CANCER
     Route: 048
     Dates: start: 20080516, end: 20080519

REACTIONS (3)
  - DEHYDRATION [None]
  - MELAENA [None]
  - SUBDURAL HAEMATOMA [None]
